FAERS Safety Report 9314616 (Version 1)
Quarter: 2013Q2

REPORT INFORMATION
  Report Type: Spontaneous
  Country: CN (occurrence: CN)
  Receive Date: 20130529
  Receipt Date: 20130529
  Transmission Date: 20140414
  Serious: Yes (Other)
  Sender: FDA-Public Use
  Company Number: CN-ASTRAZENECA-2013SE37070

PATIENT
  Age: 88 Year
  Sex: Male

DRUGS (3)
  1. NEXIUM [Suspect]
     Indication: GASTRIC ULCER
     Dosage: 20 MG EVERY OTHER DAY AS REQUIRED
     Route: 048
     Dates: start: 20100101
  2. ANTI-HYPERTENSIVE [Suspect]
     Indication: HYPERTENSION
  3. DIURETICS [Suspect]
     Indication: OLIGURIA

REACTIONS (4)
  - Melaena [Recovered/Resolved]
  - Gastric haemorrhage [Recovered/Resolved]
  - Obstruction gastric [Recovered/Resolved]
  - Intentional drug misuse [Recovered/Resolved]
